FAERS Safety Report 6695425-8 (Version None)
Quarter: 2010Q2

REPORT INFORMATION
  Report Type: 
  Country: None (occurrence: None)
  Receive Date: 20100422
  Receipt Date: 20100422
  Transmission Date: 20101027
  Serious: No
  Sender: FDA-Public Use
  Company Number: None

PATIENT
  Sex: Female
  Weight: 53.5244 kg

DRUGS (2)
  1. DEPAKOTE [Suspect]
     Indication: BIPOLAR DISORDER
     Dosage: 750 MG A.M.-P.M. EARLY '90S-2010
     Dates: end: 20100101
  2. DEPAKOTE [Suspect]
     Indication: MIGRAINE
     Dosage: 750 MG A.M.-P.M. EARLY '90S-2010
     Dates: end: 20100101

REACTIONS (2)
  - PRODUCT SUBSTITUTION ISSUE [None]
  - SOMNOLENCE [None]
